FAERS Safety Report 19259623 (Version 1)
Quarter: 2021Q2

REPORT INFORMATION
  Report Type: Spontaneous
  Country: ZW (occurrence: ZW)
  Receive Date: 20210514
  Receipt Date: 20210514
  Transmission Date: 20210717
  Serious: Yes (Other)
  Sender: FDA-Public Use
  Company Number: ZW-POPULATION COUNCIL-2020TPC000187

PATIENT
  Age: 33 Year
  Sex: Female

DRUGS (2)
  1. TENOLAM E [Concomitant]
     Indication: PRODUCT USED FOR UNKNOWN INDICATION
  2. JADELLE [Suspect]
     Active Substance: LEVONORGESTREL
     Indication: CONTRACEPTION
     Route: 059
     Dates: start: 20190522, end: 20191112

REACTIONS (2)
  - Pregnancy with implant contraceptive [None]
  - Drug ineffective [None]

NARRATIVE: CASE EVENT DATE: 20191112
